FAERS Safety Report 6993188-X (Version None)
Quarter: 2010Q3

REPORT INFORMATION
  Report Type: 
  Country: None (occurrence: None)
  Receive Date: 20100917
  Receipt Date: 20100427
  Transmission Date: 20110219
  Serious: Yes (Other)
  Sender: FDA-Public Use
  Company Number: US-ASTRAZENECA-2007UW18310

PATIENT
  Age: 18959 Day
  Sex: Female
  Weight: 109.8 kg

DRUGS (46)
  1. SEROQUEL [Suspect]
     Indication: SLEEP DISORDER
     Dosage: 25 TO 400 MG
     Route: 048
     Dates: start: 20010405
  2. SEROQUEL [Suspect]
     Indication: DEPRESSION
     Dosage: 25 TO 400 MG
     Route: 048
     Dates: start: 20010405
  3. SEROQUEL [Suspect]
     Indication: ANXIETY
     Dosage: 25 TO 400 MG
     Route: 048
     Dates: start: 20010405
  4. SEROQUEL [Suspect]
     Dosage: 25 MG AS REQUIRED AND 100 MG AT NIGHT
     Route: 048
     Dates: start: 20010424
  5. SEROQUEL [Suspect]
     Dosage: 25 MG AS REQUIRED AND 100 MG AT NIGHT
     Route: 048
     Dates: start: 20010424
  6. SEROQUEL [Suspect]
     Dosage: 25 MG AS REQUIRED AND 100 MG AT NIGHT
     Route: 048
     Dates: start: 20010424
  7. SEROQUEL [Suspect]
     Dosage: 100 MG TO 300 MG AT NIGHT
     Route: 048
     Dates: start: 20010522
  8. SEROQUEL [Suspect]
     Dosage: 100 MG TO 300 MG AT NIGHT
     Route: 048
     Dates: start: 20010522
  9. SEROQUEL [Suspect]
     Dosage: 100 MG TO 300 MG AT NIGHT
     Route: 048
     Dates: start: 20010522
  10. SEROQUEL [Suspect]
     Dosage: 25 MG TO 200 MG AT NIGHT
     Route: 048
     Dates: start: 20030612
  11. SEROQUEL [Suspect]
     Dosage: 25 MG TO 200 MG AT NIGHT
     Route: 048
     Dates: start: 20030612
  12. SEROQUEL [Suspect]
     Dosage: 25 MG TO 200 MG AT NIGHT
     Route: 048
     Dates: start: 20030612
  13. SEROQUEL [Suspect]
     Dosage: 25 MG THREE TIMES A DAY AS REQUIRED AND 200 MG AT NIGHT
     Route: 048
     Dates: start: 20051114
  14. SEROQUEL [Suspect]
     Dosage: 25 MG THREE TIMES A DAY AS REQUIRED AND 200 MG AT NIGHT
     Route: 048
     Dates: start: 20051114
  15. SEROQUEL [Suspect]
     Dosage: 25 MG THREE TIMES A DAY AS REQUIRED AND 200 MG AT NIGHT
     Route: 048
     Dates: start: 20051114
  16. SEROQUEL [Suspect]
     Dosage: 25 MG ONE TABLET TWICE DAILY AND 200 MG 2 TABLETS TWO TIMES A DAY
     Route: 048
     Dates: start: 20070621
  17. SEROQUEL [Suspect]
     Dosage: 25 MG ONE TABLET TWICE DAILY AND 200 MG 2 TABLETS TWO TIMES A DAY
     Route: 048
     Dates: start: 20070621
  18. SEROQUEL [Suspect]
     Dosage: 25 MG ONE TABLET TWICE DAILY AND 200 MG 2 TABLETS TWO TIMES A DAY
     Route: 048
     Dates: start: 20070621
  19. GEODON [Concomitant]
  20. STELAZINE [Concomitant]
     Dates: start: 19970101
  21. THORAZINE [Concomitant]
     Dates: start: 19790101
  22. SERZONE [Concomitant]
  23. KLONOPIN [Concomitant]
     Indication: PANIC ATTACK
     Dosage: 3 MG TO 4 MG
     Route: 048
     Dates: start: 19991027
  24. KLONOPIN [Concomitant]
     Indication: DEPRESSION
     Dosage: 3 MG TO 4 MG
     Route: 048
     Dates: start: 19991027
  25. KLONOPIN [Concomitant]
     Indication: ANXIETY
     Dosage: 3 MG TO 4 MG
     Route: 048
     Dates: start: 19991027
  26. DEPAKOTE [Concomitant]
     Dates: start: 20010220
  27. EFFEXOR XR [Concomitant]
     Dosage: 75 MG TO 300 MG
     Route: 048
     Dates: start: 20010404
  28. CELEXA [Concomitant]
     Route: 048
     Dates: start: 20010808
  29. NEURONTIN [Concomitant]
     Indication: INSOMNIA
     Dosage: 300 MG 3 TABLETS AT NIGHT
     Route: 048
     Dates: start: 20020905
  30. NEURONTIN [Concomitant]
     Route: 048
     Dates: start: 20030519
  31. BUSPAR [Concomitant]
     Indication: ANXIETY
     Route: 048
     Dates: start: 20020905
  32. PREMPRO [Concomitant]
     Dosage: 0.3 MG TO 2.5 MG DAILY
     Dates: start: 20020905
  33. BETAPACE [Concomitant]
     Indication: ATRIAL FIBRILLATION
     Dosage: 80 MG TO 160 MG
     Route: 048
     Dates: start: 20020905
  34. GLUCOPHAGE [Concomitant]
     Route: 048
     Dates: start: 20030421
  35. GLUCOPHAGE [Concomitant]
     Route: 048
     Dates: start: 20061004
  36. DOXEPIN HCL [Concomitant]
     Indication: PRURITUS
     Route: 048
     Dates: start: 20030519
  37. HYDROCHLOROTHIAZIDE [Concomitant]
     Route: 048
     Dates: start: 20030617
  38. PROTONIX [Concomitant]
     Indication: GASTROOESOPHAGEAL REFLUX DISEASE
     Route: 048
     Dates: start: 20030716
  39. PROMETHAZINE [Concomitant]
     Route: 048
     Dates: start: 20031029
  40. ZOLOFT [Concomitant]
     Indication: DEPRESSION
     Dosage: 100 MG 1 AND HALF DAILY
     Dates: start: 20031113
  41. SONATA [Concomitant]
     Dates: start: 20041018
  42. KEPPRA [Concomitant]
     Dosage: 750 MG 2 TAB TWO TIMES A DAY
     Dates: start: 20041018
  43. QUININE SULFATE [Concomitant]
     Indication: MUSCLE SPASMS
     Dates: start: 20051114
  44. LUNESTA [Concomitant]
     Route: 048
     Dates: start: 20051114
  45. GLYBURIDE [Concomitant]
     Route: 048
     Dates: start: 20061004
  46. LEVOTHYROXINE SODIUM [Concomitant]
     Route: 048
     Dates: start: 20061004

REACTIONS (5)
  - BACK DISORDER [None]
  - BLOOD CHOLESTEROL INCREASED [None]
  - DIABETES MELLITUS INADEQUATE CONTROL [None]
  - HYPERLIPIDAEMIA [None]
  - TYPE 2 DIABETES MELLITUS [None]
